FAERS Safety Report 18738799 (Version 1)
Quarter: 2021Q1

REPORT INFORMATION
  Report Type: Report from Study
  Country: US (occurrence: US)
  Receive Date: 20210114
  Receipt Date: 20210114
  Transmission Date: 20210419
  Serious: Yes (Other)
  Sender: FDA-Public Use
  Company Number: US-TEVA-2018-US-858996

PATIENT
  Sex: Female

DRUGS (1)
  1. AUSTEDO [Suspect]
     Active Substance: DEUTETRABENAZINE
     Indication: TARDIVE DYSKINESIA
     Dosage: TITRATION PERIOD
     Route: 065
     Dates: start: 20171115

REACTIONS (5)
  - Hostility [Unknown]
  - Aggression [Recovered/Resolved]
  - Suicidal ideation [Recovered/Resolved]
  - Depression [Unknown]
  - Anger [Recovered/Resolved]
